FAERS Safety Report 25632492 (Version 2)
Quarter: 2025Q3

REPORT INFORMATION
  Report Type: Spontaneous
  Country: US (occurrence: US)
  Receive Date: 20250801
  Receipt Date: 20250818
  Transmission Date: 20251021
  Serious: Yes (Other)
  Sender: UNICHEM
  Company Number: US-UNICHEM LABORATORIES LIMITED-UNI-2025-US-002907

PATIENT

DRUGS (1)
  1. TADALAFIL [Suspect]
     Active Substance: TADALAFIL
     Indication: Benign prostatic hyperplasia
     Route: 065

REACTIONS (6)
  - Ocular hypertension [Recovering/Resolving]
  - Hypertension [Recovering/Resolving]
  - Seasonal allergy [Unknown]
  - Hypersensitivity [Unknown]
  - Lacrimation increased [Recovering/Resolving]
  - Product substitution issue [Unknown]
